FAERS Safety Report 10249802 (Version 1)
Quarter: 2014Q2

REPORT INFORMATION
  Report Type: Spontaneous
  Country: US (occurrence: None)
  Receive Date: 20140618
  Receipt Date: 20140618
  Transmission Date: 20141212
  Serious: Yes (Life-Threatening, Hospitalization, Disabling)
  Sender: FDA-Public Use
  Company Number: None

PATIENT
  Age: 51 Year
  Sex: Male
  Weight: 133.36 kg

DRUGS (1)
  1. ACYCLOVIR 800MG TAB TEVA USA [Suspect]
     Indication: HERPES ZOSTER
     Dosage: 5 PILLS A DAY, 5 TIMES A DAY FOR, TAKEN BY MOUTH
     Route: 048
     Dates: start: 20140606, end: 20140609

REACTIONS (1)
  - Hallucination, visual [None]
